FAERS Safety Report 9250966 (Version 1)
Quarter: 2013Q1

REPORT INFORMATION
  Report Type: Spontaneous
  Country: US (occurrence: None)
  Receive Date: 20130305
  Receipt Date: 20130305
  Transmission Date: 20140127
  Serious: Yes (Other)
  Sender: FDA-Public Use
  Company Number: 163-21880-12082520

PATIENT
  Age: 56 Year
  Sex: Female
  Weight: 73.03 kg

DRUGS (8)
  1. REVLIMID [Suspect]
     Indication: PLASMA CELL MYELOMA
     Dosage: 21 IN 21 D
     Route: 048
     Dates: start: 20100801
  2. ACYCLOVIR (ACICLOVIR) (ACICLOVIR) [Concomitant]
  3. ASA (ACETYLSALICYLIC ACID) [Concomitant]
  4. DEXAMETHASONE (DEXAMETHASONE) [Concomitant]
  5. IRON (IRON) [Concomitant]
  6. LISINOPRIL/HCTZ (PRINZIDE) [Concomitant]
  7. LYRICA (PREGABALIN) [Concomitant]
  8. VITAMINS [Concomitant]

REACTIONS (3)
  - Local swelling [None]
  - Arthralgia [None]
  - Dizziness [None]
